FAERS Safety Report 22325465 (Version 2)
Quarter: 2023Q2

REPORT INFORMATION
  Report Type: Spontaneous
  Country: US (occurrence: US)
  Receive Date: 20230516
  Receipt Date: 20230614
  Transmission Date: 20230722
  Serious: No
  Sender: FDA-Public Use
  Company Number: US-BIOGEN-2023BI01200292

PATIENT
  Sex: Male

DRUGS (2)
  1. VUMERITY [Suspect]
     Active Substance: DIROXIMEL FUMARATE
     Indication: Multiple sclerosis
     Dosage: TOOK 231 MG TWICE DAILY BY MOUTH FOR 7 DAYS THEN TOOK 462MG TWICE DAILY
     Route: 050
     Dates: start: 20230409
  2. VUMERITY [Suspect]
     Active Substance: DIROXIMEL FUMARATE
     Dosage: TOOK 231 MG TWICE DAILY BY MOUTH FOR 7 DAYS THEN TOOK 462MG TWICE DAILY
     Route: 050

REACTIONS (4)
  - Abdominal discomfort [Unknown]
  - Headache [Recovered/Resolved]
  - Pruritus [Unknown]
  - Nausea [Unknown]

NARRATIVE: CASE EVENT DATE: 20230101
